FAERS Safety Report 21904138 (Version 1)
Quarter: 2023Q1

REPORT INFORMATION
  Report Type: Spontaneous
  Country: US (occurrence: US)
  Receive Date: 20230124
  Receipt Date: 20230124
  Transmission Date: 20230418
  Serious: Yes (Other)
  Sender: FDA-Public Use
  Company Number: US-AMGEN-USASP2023008767

PATIENT
  Age: 75 Year
  Sex: Female

DRUGS (5)
  1. PROLIA [Suspect]
     Active Substance: DENOSUMAB
     Indication: Osteoporosis
     Dosage: 50 MILLIGRAM, Q6MO
     Route: 058
     Dates: start: 2014
  2. LISINOPRIL [Concomitant]
     Active Substance: LISINOPRIL
     Dosage: 2.5 MILLIGRAM, QD
  3. PRAVASTATIN [Concomitant]
     Active Substance: PRAVASTATIN
     Dosage: 40 MILLIGRAM, 4 TIMES A WEEK
  4. CLARITIN [Concomitant]
     Active Substance: LORATADINE
     Dosage: UNK UNK, QD
  5. HYDROCODONE [Concomitant]
     Active Substance: HYDROCODONE
     Indication: Pain
     Dosage: LOW DOSE 5MG/325MG FOR PAIN TWICE DAILY AS NEEDED

REACTIONS (8)
  - Atrial fibrillation [Unknown]
  - Glucose tolerance impaired [Unknown]
  - Oropharyngeal pain [Recovered/Resolved]
  - Hyperhidrosis [Recovered/Resolved]
  - Arthritis [Unknown]
  - Varicose vein [Unknown]
  - Headache [Recovered/Resolved]
  - Off label use [Unknown]

NARRATIVE: CASE EVENT DATE: 20140101
